FAERS Safety Report 4444423-3 (Version None)
Quarter: 2004Q3

REPORT INFORMATION
  Report Type: 
  Country: None (occurrence: None)
  Receive Date: 20040902
  Receipt Date: 20040818
  Transmission Date: 20050211
  Serious: Yes (Disabling)
  Sender: FDA-Public Use
  Company Number: 207343

PATIENT
  Age: 66 Year
  Sex: Male
  Weight: 92.1 kg

DRUGS (8)
  1. XOLAIR [Suspect]
     Indication: ASTHMA
     Dosage: 150 MG, Q4W, SUBCUTANEOUS
     Route: 058
     Dates: start: 20040324
  2. ACCOLATE [Concomitant]
  3. THEOPHYLLAMINE (AMINOPHYLINE) [Concomitant]
  4. ALBUTEROL SULFATE (ALBUTEROL, ALBUTEROL SULFATE) [Concomitant]
  5. AEROBID [Concomitant]
  6. ATROVENT INHALER (IPRATORPIUM BROMIDE) [Concomitant]
  7. LISINOPRIL [Concomitant]
  8. NASONEX [Concomitant]

REACTIONS (22)
  - ABDOMINAL DISCOMFORT [None]
  - ASTHENIA [None]
  - BALANCE DISORDER [None]
  - CONDITION AGGRAVATED [None]
  - DEAFNESS TRANSITORY [None]
  - DERMATITIS [None]
  - DIPLOPIA [None]
  - DIZZINESS [None]
  - FATIGUE [None]
  - HEADACHE [None]
  - HYPERSOMNIA [None]
  - MUSCLE CRAMP [None]
  - MUSCLE TWITCHING [None]
  - PAIN [None]
  - RASH ERYTHEMATOUS [None]
  - RASH MACULO-PAPULAR [None]
  - RASH SCALY [None]
  - TINNITUS [None]
  - TREMOR [None]
  - VERTIGO [None]
  - VESTIBULAR DISORDER [None]
  - VISUAL FIELD DEFECT [None]
